FAERS Safety Report 24684794 (Version 2)
Quarter: 2024Q4

REPORT INFORMATION
  Report Type: Spontaneous
  Country: US (occurrence: US)
  Receive Date: 20241202
  Receipt Date: 20241202
  Transmission Date: 20250115
  Serious: Yes (Other)
  Sender: ROCHE
  Company Number: US-ROCHE-10000139695

PATIENT

DRUGS (1)
  1. OCREVUS [Suspect]
     Active Substance: OCRELIZUMAB
     Indication: Product used for unknown indication
     Route: 065

REACTIONS (5)
  - Oral pruritus [Recovered/Resolved]
  - Myocardial infarction [Unknown]
  - Palpitations [Unknown]
  - Throat irritation [Unknown]
  - Pharyngeal hypoaesthesia [Unknown]
